FAERS Safety Report 6695371-X (Version None)
Quarter: 2010Q2

REPORT INFORMATION
  Report Type: 
  Country: None (occurrence: None)
  Receive Date: 20100423
  Receipt Date: 20100423
  Transmission Date: 20101027
  Serious: Yes (Other)
  Sender: FDA-Public Use
  Company Number: None

PATIENT
  Age: 17 Year
  Sex: Female

DRUGS (1)
  1. GEODON [Suspect]
     Indication: MAJOR DEPRESSION
     Dosage: 80MG BID PO
     Route: 048
     Dates: start: 20100309, end: 20100317

REACTIONS (2)
  - AKATHISIA [None]
  - DYSTONIA [None]
